FAERS Safety Report 20602600 (Version 1)
Quarter: 2022Q1

REPORT INFORMATION
  Report Type: Spontaneous
  Country: CN (occurrence: CN)
  Receive Date: 20220316
  Receipt Date: 20220316
  Transmission Date: 20220424
  Serious: Yes (Other)
  Sender: FDA-Public Use
  Company Number: CN-BAYER-2022A034416

PATIENT
  Age: 51 Year
  Sex: Female

DRUGS (2)
  1. STIVARGA [Suspect]
     Active Substance: REGORAFENIB
     Indication: Colorectal cancer
     Dosage: 40 MG, TID
     Route: 048
     Dates: start: 20210226, end: 20210825
  2. SINTILIMAB [Concomitant]
     Active Substance: SINTILIMAB
     Indication: Colorectal cancer
     Dosage: UNK
     Dates: start: 20210226, end: 20210825

REACTIONS (4)
  - Ascites [Recovering/Resolving]
  - Pleural effusion [None]
  - Atelectasis [None]
  - Off label use [None]

NARRATIVE: CASE EVENT DATE: 20210226
